FAERS Safety Report 11199071 (Version 3)
Quarter: 2015Q3

REPORT INFORMATION
  Report Type: Spontaneous
  Country: US (occurrence: US)
  Receive Date: 20150618
  Receipt Date: 20150910
  Transmission Date: 20151125
  Serious: Yes (Hospitalization, Other)
  Sender: FDA-Public Use
  Company Number: US-009507513-1506USA008301

PATIENT
  Sex: Male
  Weight: 81.5 kg

DRUGS (1)
  1. JANUMET [Suspect]
     Active Substance: METFORMIN HYDROCHLORIDE\SITAGLIPTIN PHOSPHATE
     Indication: TYPE 2 DIABETES MELLITUS
     Dosage: 50/1000MG, BID
     Route: 048
     Dates: start: 20110126, end: 20130804

REACTIONS (48)
  - Peripancreatic fluid collection [Unknown]
  - Oedema [Unknown]
  - Splenosis [Unknown]
  - Sepsis [Unknown]
  - Urinary tract infection [Unknown]
  - Renal failure [Unknown]
  - Acute kidney injury [Unknown]
  - Balance disorder [Unknown]
  - Vomiting [Unknown]
  - Abdominal abscess [Unknown]
  - Pancreatectomy [Unknown]
  - Nodule [Unknown]
  - Systemic inflammatory response syndrome [Unknown]
  - Splenectomy [Unknown]
  - Diabetes mellitus inadequate control [Unknown]
  - Type 1 diabetes mellitus [Unknown]
  - Ear infection [Unknown]
  - Pyrexia [Unknown]
  - Constipation [Unknown]
  - Abdominal abscess [Unknown]
  - Chronic kidney disease [Not Recovered/Not Resolved]
  - Fat necrosis [Recovering/Resolving]
  - Cellulitis [Unknown]
  - Diverticulum intestinal [Unknown]
  - Bone lesion [Unknown]
  - Hypothyroidism [Unknown]
  - Arthropathy [Not Recovered/Not Resolved]
  - Peripheral swelling [Unknown]
  - Arthritis [Unknown]
  - Fall [Unknown]
  - Incisional hernia [Unknown]
  - Pyrexia [Unknown]
  - Pericardial effusion [Unknown]
  - Lymphoedema [Recovered/Resolved]
  - Pneumonia [Unknown]
  - Peritonitis [Unknown]
  - Pancreatic stent placement [Unknown]
  - Pleural effusion [Unknown]
  - Benign prostatic hyperplasia [Unknown]
  - Adrenal adenoma [Unknown]
  - Device breakage [Unknown]
  - Adenocarcinoma pancreas [Unknown]
  - Vomiting [Unknown]
  - Iron deficiency anaemia [Unknown]
  - Leukocytosis [Unknown]
  - Lymphadenopathy [Unknown]
  - Rosacea [Unknown]
  - Adrenal mass [Unknown]

NARRATIVE: CASE EVENT DATE: 20110923
